FAERS Safety Report 23558185 (Version 1)
Quarter: 2024Q1

REPORT INFORMATION
  Report Type: Spontaneous
  Country: CN (occurrence: CN)
  Receive Date: 20240223
  Receipt Date: 20240223
  Transmission Date: 20240409
  Serious: Yes (Hospitalization, Other)
  Sender: FDA-Public Use
  Company Number: CN-SHANGHAI JUNSHI BIOSCIENCES CO., LTD.-CN2024009344

PATIENT

DRUGS (2)
  1. TORIPALIMAB [Suspect]
     Active Substance: TORIPALIMAB
     Indication: Malignant melanoma
     Dosage: 240 MG, PUMP INJECTION
     Route: 042
     Dates: start: 20240104, end: 20240104
  2. SODIUM CHLORIDE [Concomitant]
     Active Substance: SODIUM CHLORIDE
     Indication: Medication dilution
     Dosage: 100 ML, PUMP INJECTION
     Route: 042
     Dates: start: 20240104, end: 20240104

REACTIONS (3)
  - Liver injury [Recovering/Resolving]
  - Product administration error [Unknown]
  - Medication error [Unknown]

NARRATIVE: CASE EVENT DATE: 20240104
